FAERS Safety Report 14814122 (Version 2)
Quarter: 2018Q2

REPORT INFORMATION
  Report Type: Report from Study
  Country: US (occurrence: US)
  Receive Date: 20180426
  Receipt Date: 20180504
  Transmission Date: 20180711
  Serious: Yes (Hospitalization)
  Sender: FDA-Public Use
  Company Number: US-ACTELION-A-NJ2018-170926

PATIENT
  Age: 69 Year
  Sex: Female
  Weight: 60.77 kg

DRUGS (4)
  1. VELETRI [Suspect]
     Active Substance: EPOPROSTENOL
     Indication: PULMONARY HYPERTENSION
     Dosage: 8 NG/KG, PER MIN
     Route: 042
     Dates: start: 201804
  2. OPSUMIT [Concomitant]
     Active Substance: MACITENTAN
     Indication: PULMONARY HYPERTENSION
  3. UPTRAVI [Suspect]
     Active Substance: SELEXIPAG
     Indication: PULMONARY HYPERTENSION
     Dosage: 1400 MCG, BID
     Route: 048
     Dates: end: 201804
  4. ADCIRCA [Concomitant]
     Active Substance: TADALAFIL

REACTIONS (8)
  - Cough [Unknown]
  - Catheter placement [Unknown]
  - Catheter site erythema [Unknown]
  - Flushing [Unknown]
  - Diarrhoea [Unknown]
  - Pain in jaw [Unknown]
  - Disease progression [Unknown]
  - Productive cough [Unknown]

NARRATIVE: CASE EVENT DATE: 20180409
